FAERS Safety Report 12604445 (Version 2)
Quarter: 2016Q3

REPORT INFORMATION
  Report Type: Spontaneous
  Country: US (occurrence: US)
  Receive Date: 20160728
  Receipt Date: 20160809
  Transmission Date: 20161109
  Serious: Yes (Other)
  Sender: FDA-Public Use
  Company Number: US-GLAXOSMITHKLINE-US2016GSK109711

PATIENT
  Sex: Female

DRUGS (4)
  1. LOVAZA [Suspect]
     Active Substance: OMEGA-3-ACID ETHYL ESTERS
     Indication: BLOOD TRIGLYCERIDES INCREASED
     Dosage: 1 G, UNK
  2. FISH OIL [Suspect]
     Active Substance: FISH OIL
     Indication: BLOOD TRIGLYCERIDES INCREASED
  3. FISH OIL [Suspect]
     Active Substance: FISH OIL
     Indication: COLOSTOMY
  4. LOVAZA [Suspect]
     Active Substance: OMEGA-3-ACID ETHYL ESTERS
     Indication: COLOSTOMY

REACTIONS (7)
  - Colon operation [Unknown]
  - Adverse drug reaction [Unknown]
  - Intestinal resection [Unknown]
  - Pain [Unknown]
  - Abscess drainage [Unknown]
  - Neuropathy peripheral [Unknown]
  - Diarrhoea [Unknown]

NARRATIVE: CASE EVENT DATE: 2013
